FAERS Safety Report 24793208 (Version 1)
Quarter: 2024Q4

REPORT INFORMATION
  Report Type: Spontaneous
  Country: CA (occurrence: CA)
  Receive Date: 20241231
  Receipt Date: 20241231
  Transmission Date: 20250115
  Serious: Yes (Hospitalization, Other)
  Sender: ACCORD
  Company Number: None

PATIENT
  Age: 45 Year
  Sex: Male

DRUGS (7)
  1. METHOTREXATE [Suspect]
     Active Substance: METHOTREXATE
     Indication: Product used for unknown indication
     Dosage: 1 EVERY 1 WEEKS
     Route: 048
  2. FOLIC ACID [Concomitant]
     Active Substance: FOLIC ACID
     Dosage: 1 EVERY 1 WEEKS
  3. HUMIRA [Concomitant]
     Active Substance: ADALIMUMAB
     Dosage: SOLUTION SUBCUTANEOUS, 1 EVERY 1 WEEKS
  4. PREDNISONE [Concomitant]
     Active Substance: PREDNISONE
  5. REMICADE [Concomitant]
     Active Substance: INFLIXIMAB
     Dosage: POWDER FOR SOLUTION INTRAVENOUS
  6. UPADACITINIB [Concomitant]
     Active Substance: UPADACITINIB
     Dosage: TABLET (EXTENDED- RELEASE)
  7. USTEKINUMAB [Concomitant]
     Active Substance: USTEKINUMAB

REACTIONS (3)
  - Back pain [Not Recovered/Not Resolved]
  - Intestinal obstruction [Not Recovered/Not Resolved]
  - Weight decreased [Not Recovered/Not Resolved]
